FAERS Safety Report 7031163-X (Version None)
Quarter: 2010Q4

REPORT INFORMATION
  Report Type: 
  Country: None (occurrence: None)
  Receive Date: 20101006
  Receipt Date: 20100928
  Transmission Date: 20110411
  Serious: Yes (Hospitalization)
  Sender: FDA-Public Use
  Company Number: DE-AMGEN-QUU442087

PATIENT
  Sex: Female
  Weight: 60.8 kg

DRUGS (4)
  1. ENBREL [Suspect]
     Indication: JUVENILE ARTHRITIS
     Route: 058
     Dates: start: 20080401, end: 20100916
  2. METEX [Suspect]
     Indication: JUVENILE ARTHRITIS
     Route: 058
  3. URBASON [Suspect]
     Indication: JUVENILE ARTHRITIS
     Route: 058
     Dates: start: 20100909, end: 20100911
  4. FOLIC ACID [Concomitant]
     Indication: JUVENILE ARTHRITIS
     Route: 048

REACTIONS (1)
  - PANCREATITIS [None]
